FAERS Safety Report 6298756-9 (Version None)
Quarter: 2009Q3

REPORT INFORMATION
  Report Type: 
  Country: None (occurrence: None)
  Receive Date: 20090806
  Receipt Date: 20090727
  Transmission Date: 20100115
  Serious: Yes (Hospitalization, Other)
  Sender: FDA-Public Use
  Company Number: US-BIOGENIDEC-2009BI023581

PATIENT
  Age: 40 Year
  Sex: Female

DRUGS (2)
  1. AVONEX [Suspect]
     Indication: MULTIPLE SCLEROSIS
     Route: 030
     Dates: start: 20060301
  2. COPAXONE [Concomitant]

REACTIONS (25)
  - ALOPECIA [None]
  - AMNESIA [None]
  - BACK PAIN [None]
  - BALANCE DISORDER [None]
  - BLOOD PRESSURE INCREASED [None]
  - CONVULSION [None]
  - COORDINATION ABNORMAL [None]
  - CORONARY ARTERY OCCLUSION [None]
  - DYSPHEMIA [None]
  - DYSPNOEA [None]
  - FATIGUE [None]
  - HEADACHE [None]
  - HEART RATE INCREASED [None]
  - HYPOAESTHESIA [None]
  - INJECTION SITE HAEMORRHAGE [None]
  - INJECTION SITE PAIN [None]
  - NERVE COMPRESSION [None]
  - OTORRHOEA [None]
  - PAIN IN EXTREMITY [None]
  - SKIN DISORDER [None]
  - SWELLING FACE [None]
  - THYROID MASS [None]
  - THYROIDECTOMY [None]
  - TREMOR [None]
  - VISION BLURRED [None]
